FAERS Safety Report 20893583 (Version 1)
Quarter: 2022Q2

REPORT INFORMATION
  Report Type: Spontaneous
  Country: IR (occurrence: IR)
  Receive Date: 20220531
  Receipt Date: 20220531
  Transmission Date: 20220721
  Serious: Yes (Other)
  Sender: FDA-Public Use
  Company Number: IR-ALKEM LABORATORIES LIMITED-IR-ALKEM-2022-05075

PATIENT
  Age: 35 Year
  Sex: Male

DRUGS (1)
  1. SILDENAFIL [Suspect]
     Active Substance: SILDENAFIL
     Indication: Product used for unknown indication
     Dosage: FOUR TIMES; 100 MG IN A LIMITED PERIOD (3 DAYS)
     Route: 065

REACTIONS (2)
  - Central serous chorioretinopathy [Unknown]
  - Serous retinal detachment [Unknown]
